FAERS Safety Report 7877067-1 (Version None)
Quarter: 2011Q4

REPORT INFORMATION
  Report Type: 
  Country: None (occurrence: None)
  Receive Date: 20111031
  Receipt Date: 20111026
  Transmission Date: 20120403
  Serious: Yes (Life-Threatening)
  Sender: FDA-Public Use
  Company Number: PHHY2011GB70779

PATIENT
  Age: 43 Year
  Sex: Female
  Weight: 70.9 kg

DRUGS (7)
  1. CETIRIZINE HCL [Concomitant]
     Indication: PRURITUS
     Dosage: UNK UKN, UNK
     Dates: start: 20040101
  2. LEFLUNOMIDE [Suspect]
     Dosage: UNK
     Dates: start: 20031229, end: 20070101
  3. LANSOPRAZOLE [Concomitant]
     Indication: PROPHYLAXIS AGAINST GASTROINTESTINAL ULCER
     Dosage: UNK UKN, UNK
     Dates: start: 20100429
  4. LEFLUNOMIDE [Suspect]
     Indication: PSORIATIC ARTHROPATHY
     Dosage: 10 MG, QD
     Route: 048
     Dates: start: 20031113
  5. LEFLUNOMIDE [Suspect]
     Dosage: UNK
     Dates: start: 20100101, end: 20110707
  6. DEVIL'S CLAW [Concomitant]
     Dosage: UNK UKN, UNK
  7. ETODOLAC [Concomitant]
     Indication: PSORIATIC ARTHROPATHY
     Dosage: UNK UKN, UNK
     Dates: start: 20050505

REACTIONS (3)
  - BREAST CANCER [None]
  - BREAST MASS [None]
  - METASTASES TO LYMPH NODES [None]
